FAERS Safety Report 4761123-0 (Version None)
Quarter: 2005Q3

REPORT INFORMATION
  Report Type: 
  Country: None (occurrence: None)
  Receive Date: 20050901
  Receipt Date: 20050827
  Transmission Date: 20060218
  Serious: Yes (Other)
  Sender: FDA-Public Use
  Company Number: GXKR2005IT01511

PATIENT
  Age: 60 Year
  Sex: Male

DRUGS (5)
  1. MIRTAZAPINE [Suspect]
     Indication: MAJOR DEPRESSION
     Dosage: 15 MG, QD; 7.5, QD
  2. VENLAFAXINE HCL [Suspect]
     Indication: MAJOR DEPRESSION
     Dosage: 150 MG, QD; 100 MG, QD; 37.5 MG, QD
  3. ESCITALOPRAM OXALATE [Suspect]
     Indication: MAJOR DEPRESSION
     Dosage: 20 MG, QD; 15 MG, QD; 5 MG, QD
  4. OMEPRAZOLE [Concomitant]
  5. IRBESARTAN [Concomitant]

REACTIONS (4)
  - DRUG INTERACTION [None]
  - EPISTAXIS [None]
  - PLATELET AGGREGATION INCREASED [None]
  - RECTAL HAEMORRHAGE [None]
